FAERS Safety Report 5636442-6 (Version None)
Quarter: 2008Q1

REPORT INFORMATION
  Report Type: 
  Country: None (occurrence: None)
  Receive Date: 20080225
  Receipt Date: 20080215
  Transmission Date: 20080703
  Serious: Yes (Hospitalization, Other)
  Sender: FDA-Public Use
  Company Number: PHHY2008JP01907

PATIENT
  Age: 60 Year
  Sex: Female

DRUGS (7)
  1. LANSOPRAZOLE [Concomitant]
     Indication: GASTRITIS
     Dosage: 30MG/DAY
     Route: 048
  2. RHEUMATREX [Concomitant]
     Indication: MUSCULOSKELETAL PAIN
     Route: 048
  3. FOLIAMIN [Concomitant]
     Indication: MUSCULOSKELETAL PAIN
     Dosage: 5 MG/DAY
     Route: 048
  4. MEDROL [Concomitant]
     Indication: MUSCULOSKELETAL PAIN
     Dosage: 2 MG/DAY
  5. MEVALOTIN [Concomitant]
     Indication: HYPERLIPIDAEMIA
     Dosage: 10 MG/DAY
     Route: 048
  6. LAXOBERON [Concomitant]
     Indication: CONSTIPATION
     Dosage: 10 ML/DAY
     Route: 048
  7. SALAGEN [Suspect]
     Indication: SJOGREN'S SYNDROME
     Dosage: 5 MG, BID
     Route: 048
     Dates: start: 20071214, end: 20080112

REACTIONS (5)
  - DYSPNOEA [None]
  - MALAISE [None]
  - NYSTAGMUS [None]
  - OXYGEN SATURATION DECREASED [None]
  - VERTIGO CNS ORIGIN [None]
